FAERS Safety Report 12328272 (Version 2)
Quarter: 2016Q2

REPORT INFORMATION
  Report Type: Spontaneous
  Country: JP (occurrence: JP)
  Receive Date: 20160503
  Receipt Date: 20160523
  Transmission Date: 20160815
  Serious: Yes (Other)
  Sender: FDA-Public Use
  Company Number: JP-ELI_LILLY_AND_COMPANY-JP201604009382

PATIENT
  Age: 72 Year
  Sex: Female

DRUGS (6)
  1. FORTEO [Suspect]
     Active Substance: TERIPARATIDE
     Indication: PRODUCT USED FOR UNKNOWN INDICATION
     Dosage: UNK
     Route: 058
  2. LOXONIN [Concomitant]
     Active Substance: LOXOPROFEN SODIUM
  3. OLMETEC [Concomitant]
     Active Substance: OLMESARTAN MEDOXOMIL
  4. AMLODIPINE [Concomitant]
     Active Substance: AMLODIPINE BESYLATE
  5. EDIROL [Concomitant]
     Active Substance: ELDECALCITOL
  6. CRESTOR [Concomitant]
     Active Substance: ROSUVASTATIN CALCIUM

REACTIONS (2)
  - Hypercalcaemia [Unknown]
  - Renal failure [Unknown]
